FAERS Safety Report 21986006 (Version 1)
Quarter: 2023Q1

REPORT INFORMATION
  Report Type: Spontaneous
  Country: US (occurrence: None)
  Receive Date: 20230211
  Receipt Date: 20230211
  Transmission Date: 20230417
  Serious: Yes (unspecified)
  Sender: FDA-Public Use
  Company Number: None

PATIENT
  Sex: 0

DRUGS (1)
  1. TRASTUZUMAB-QYYP [Suspect]
     Active Substance: TRASTUZUMAB-QYYP

REACTIONS (5)
  - Chills [None]
  - Therapy interrupted [None]
  - Therapy change [None]
  - Rash [None]
  - Infusion related reaction [None]

NARRATIVE: CASE EVENT DATE: 20230124
